FAERS Safety Report 12281486 (Version 1)
Quarter: 2016Q2

REPORT INFORMATION
  Report Type: Spontaneous
  Country: FR (occurrence: FR)
  Receive Date: 20160419
  Receipt Date: 20160419
  Transmission Date: 20160815
  Serious: Yes (Hospitalization)
  Sender: FDA-Public Use
  Company Number: FR-SA-2016SA072126

PATIENT
  Age: 85 Year
  Sex: Male

DRUGS (18)
  1. BRILIQUE [Concomitant]
     Active Substance: TICAGRELOR
  2. SPIRONOLACTONE. [Concomitant]
     Active Substance: SPIRONOLACTONE
  3. RAMIPRIL. [Concomitant]
     Active Substance: RAMIPRIL
  4. CEFTRIAXONE. [Concomitant]
     Active Substance: CEFTRIAXONE
  5. AMIODARONE [Concomitant]
     Active Substance: AMIODARONE
  6. PULMICORT TURBUHALER [Concomitant]
     Active Substance: BUDESONIDE
  7. PREVISCAN [Suspect]
     Active Substance: FLUINDIONE
     Indication: ATRIAL FIBRILLATION
     Route: 048
     Dates: start: 20160307, end: 20160314
  8. ZOPICLONE [Concomitant]
     Active Substance: ZOPICLONE
  9. INEXIUM [Concomitant]
     Active Substance: ESOMEPRAZOLE
  10. KARDEGIC [Suspect]
     Active Substance: ASPIRIN LYSINE
     Indication: ACUTE CORONARY SYNDROME
     Route: 048
     Dates: start: 20160224
  11. PREVISCAN [Suspect]
     Active Substance: FLUINDIONE
     Indication: ATRIAL FIBRILLATION
     Route: 048
     Dates: start: 20160302, end: 20160303
  12. DOLIPRANE [Concomitant]
     Active Substance: ACETAMINOPHEN
  13. TAHOR [Concomitant]
     Active Substance: ATORVASTATIN CALCIUM
  14. PLAVIX [Suspect]
     Active Substance: CLOPIDOGREL BISULFATE
     Indication: ACUTE CORONARY SYNDROME
     Route: 048
     Dates: start: 20160303
  15. LOVENOX [Suspect]
     Active Substance: ENOXAPARIN SODIUM
     Indication: ACUTE CORONARY SYNDROME
     Route: 058
     Dates: start: 20160224, end: 20160305
  16. PREVISCAN [Suspect]
     Active Substance: FLUINDIONE
     Indication: ATRIAL FIBRILLATION
     Route: 048
     Dates: start: 20160305, end: 20160307
  17. AUGMENTIN [Concomitant]
     Active Substance: AMOXICILLIN\CLAVULANATE POTASSIUM
  18. SOLUPRED [Concomitant]
     Active Substance: PREDNISOLONE

REACTIONS (3)
  - Haematoma [Recovered/Resolved]
  - Ecchymosis [Not Recovered/Not Resolved]
  - Blister [Recovered/Resolved]

NARRATIVE: CASE EVENT DATE: 20160304
